FAERS Safety Report 12652249 (Version 3)
Quarter: 2016Q3

REPORT INFORMATION
  Report Type: Spontaneous
  Country: US (occurrence: US)
  Receive Date: 20160815
  Receipt Date: 20160920
  Transmission Date: 20161109
  Serious: Yes (Hospitalization, Other)
  Sender: FDA-Public Use
  Company Number: US-ALEXION PHARMACEUTICALS INC-A201605823

PATIENT
  Sex: Male

DRUGS (1)
  1. SOLIRIS [Suspect]
     Active Substance: ECULIZUMAB
     Indication: HAEMOLYTIC URAEMIC SYNDROME
     Dosage: 900 MG, SINGLE, WEEKLY
     Route: 042
     Dates: start: 20160723, end: 20160723

REACTIONS (10)
  - Infection [Not Recovered/Not Resolved]
  - Vomiting [Unknown]
  - Urinary tract infection [Unknown]
  - Hypertension [Unknown]
  - Pancreatitis [Unknown]
  - Diarrhoea [Unknown]
  - Adverse event [Unknown]
  - Pleural effusion [Unknown]
  - Pancreatic cyst [Unknown]
  - Nausea [Unknown]
